FAERS Safety Report 11525396 (Version 1)
Quarter: 2015Q3

REPORT INFORMATION
  Report Type: Spontaneous
  Country: US (occurrence: US)
  Receive Date: 20150918
  Receipt Date: 20150918
  Transmission Date: 20151125
  Serious: Yes (Hospitalization)
  Sender: FDA-Public Use
  Company Number: US-TEVA-594497USA

PATIENT
  Age: 43 Year
  Sex: Male

DRUGS (1)
  1. WARFARIN [Suspect]
     Active Substance: WARFARIN
     Indication: OVERDOSE
     Dosage: 168MG OVER 4 DAYS
     Route: 048

REACTIONS (6)
  - Epistaxis [Recovering/Resolving]
  - Retroperitoneal haematoma [Recovering/Resolving]
  - Suicide attempt [Recovering/Resolving]
  - Overdose [Recovering/Resolving]
  - Coagulopathy [Recovering/Resolving]
  - Ecchymosis [Recovering/Resolving]
